FAERS Safety Report 6059084-X (Version None)
Quarter: 2009Q1

REPORT INFORMATION
  Report Type: 
  Country: None (occurrence: None)
  Receive Date: 20090130
  Receipt Date: 20090124
  Transmission Date: 20090719
  Serious: Yes (Hospitalization)
  Sender: FDA-Public Use
  Company Number: Z0000683A

PATIENT
  Age: 68 Year
  Sex: Male
  Weight: 113.3 kg

DRUGS (2)
  1. TOPOTECAN [Suspect]
     Dosage: 25MG CYCLIC
     Route: 048
     Dates: start: 20090109, end: 20090113
  2. BEVACIZUMAB [Suspect]
     Dosage: 1704MG CYCLIC
     Route: 042
     Dates: start: 20090109

REACTIONS (1)
  - BRONCHITIS [None]
